FAERS Safety Report 4365457-3 (Version None)
Quarter: 2004Q2

REPORT INFORMATION
  Report Type: 
  Country: None (occurrence: None)
  Receive Date: 20040526
  Receipt Date: 20040518
  Transmission Date: 20050107
  Serious: Yes (Hospitalization)
  Sender: FDA-Public Use
  Company Number: FR-BRISTOL-MYERS SQUIBB COMPANY-12590287

PATIENT
  Age: 67 Year
  Sex: Male

DRUGS (5)
  1. ELISOR [Suspect]
     Route: 048
     Dates: start: 20010630, end: 20031220
  2. BRIEM [Suspect]
     Route: 048
     Dates: start: 19980630, end: 20031220
  3. KARDEGIC [Concomitant]
  4. MAXEPA [Concomitant]
  5. NIFEDIPINE [Concomitant]

REACTIONS (4)
  - JAUNDICE [None]
  - LUNG DISORDER [None]
  - PANCREATITIS [None]
  - RASH [None]
